FAERS Safety Report 8427534-7 (Version None)
Quarter: 2012Q2

REPORT INFORMATION
  Report Type: 
  Country: None (occurrence: None)
  Receive Date: 20120611
  Receipt Date: 20120531
  Transmission Date: 20120825
  Serious: Yes (Hospitalization, Other)
  Sender: FDA-Public Use
  Company Number: IE-NOVOPROD-351257

PATIENT
  Age: 67 Year
  Sex: Male

DRUGS (9)
  1. OXYNORM [Concomitant]
     Dosage: 20 MG, QD
  2. BISOPROLOL FUMARATE [Concomitant]
     Dosage: 2.5 MG, QD
  3. SENOKOT [Concomitant]
  4. ZOLPIDEM TARTRATE [Concomitant]
     Dosage: 5 MG, QD
  5. VICTOZA [Suspect]
     Indication: TYPE 2 DIABETES MELLITUS
     Dosage: 0.6 MG, QD
     Route: 058
     Dates: start: 20110501
  6. HALOPERIDOL [Concomitant]
     Dosage: 1.5 MG, QD
  7. METFORMIN HCL [Concomitant]
     Dosage: 1000 MG, QD
  8. VICTOZA [Suspect]
     Dosage: 1.2 MG, QD
     Route: 058
  9. AMIODARONE HCL [Concomitant]
     Dosage: 200 MG, QD

REACTIONS (1)
  - NEUROENDOCRINE CARCINOMA METASTATIC [None]
